FAERS Safety Report 5476839-0 (Version None)
Quarter: 2007Q4

REPORT INFORMATION
  Report Type: 
  Country: None (occurrence: None)
  Receive Date: 20071004
  Receipt Date: 20070924
  Transmission Date: 20080405
  Serious: Yes (Death, Hospitalization)
  Sender: FDA-Public Use
  Company Number: US-BRISTOL-MYERS SQUIBB COMPANY-13906599

PATIENT
  Age: 82 Year
  Sex: Female
  Weight: 70 kg

DRUGS (23)
  1. ORENCIA [Suspect]
     Indication: RHEUMATOID ARTHRITIS
     Dates: start: 20070501, end: 20070814
  2. PEPCID [Concomitant]
  3. LACTOBACILLUS [Concomitant]
  4. VANCOMYCIN [Concomitant]
  5. METRONIDAZOLE [Concomitant]
  6. XANAX [Concomitant]
  7. NEURONTIN [Concomitant]
  8. TOPROL-XL [Concomitant]
  9. HEPARIN [Concomitant]
  10. FOSAMAX [Concomitant]
  11. ULTRAM [Concomitant]
  12. VITAMIN E [Concomitant]
  13. OS-CAL [Concomitant]
  14. GLUCOSAMINE [Concomitant]
  15. CHONDROITIN [Concomitant]
  16. FOLIC ACID [Concomitant]
  17. METHOTREXATE [Concomitant]
     Indication: RHEUMATOID ARTHRITIS
     Dates: start: 20041201
  18. PREDNISONE [Concomitant]
     Dates: start: 20041201
  19. PLAQUENIL [Concomitant]
     Indication: RHEUMATOID ARTHRITIS
     Dates: start: 20050501
  20. ASPIRIN [Concomitant]
  21. ALBUTEROL [Concomitant]
     Dates: start: 20060501
  22. NITROGLYCERIN [Concomitant]
  23. ARAVA [Concomitant]
     Indication: RHEUMATOID ARTHRITIS
     Dates: start: 20060201

REACTIONS (2)
  - RESPIRATORY FAILURE [None]
  - RHEUMATOID LUNG [None]
